FAERS Safety Report 10047253 (Version 1)
Quarter: 2014Q1

REPORT INFORMATION
  Report Type: Spontaneous
  Country: US (occurrence: US)
  Receive Date: 20140331
  Receipt Date: 20140331
  Transmission Date: 20141002
  Serious: No
  Sender: FDA-Public Use
  Company Number: -MYLANLABS-2013S1024750

PATIENT
  Sex: Female

DRUGS (1)
  1. FENTANYL TRANSDERMAL SYSTEM [Suspect]
     Indication: BACK PAIN
     Dosage: CHANGED Q72H THEN ON UNKNOWN DATE CHANGED TO Q48H
     Route: 062

REACTIONS (5)
  - Drug effect decreased [Recovered/Resolved]
  - Pain [Recovered/Resolved]
  - Drug effect increased [Recovered/Resolved]
  - Euphoric mood [Recovered/Resolved]
  - Wrong technique in drug usage process [Recovered/Resolved]
